FAERS Safety Report 16193719 (Version 2)
Quarter: 2019Q2

REPORT INFORMATION
  Report Type: Spontaneous
  Country: US (occurrence: US)
  Receive Date: 20190413
  Receipt Date: 20190604
  Transmission Date: 20190711
  Serious: Yes (Other)
  Sender: FDA-Public Use
  Company Number: US-AMGEN-USASP2019056252

PATIENT
  Age: 90 Year
  Sex: Female

DRUGS (8)
  1. VITAMIN D3 [Concomitant]
     Active Substance: CHOLECALCIFEROL
  2. CALCIUM [Concomitant]
     Active Substance: CALCIUM
  3. PROLIA [Suspect]
     Active Substance: DENOSUMAB
     Indication: OSTEOPOROSIS POSTMENOPAUSAL
     Dosage: 60 MILLIGRAM, Q6MO
     Route: 065
     Dates: start: 2015
  4. METOPROLOL. [Concomitant]
     Active Substance: METOPROLOL
  5. PROLIA [Suspect]
     Active Substance: DENOSUMAB
     Dosage: 60 MILLIGRAM, Q6MO
     Route: 065
     Dates: start: 2017
  6. ELIQUIS [Concomitant]
     Active Substance: APIXABAN
  7. LOSARTAN. [Concomitant]
     Active Substance: LOSARTAN
  8. CHONDROITIN [Concomitant]
     Active Substance: CHONDROITIN

REACTIONS (11)
  - Cardiac pacemaker insertion [Unknown]
  - Weight increased [Unknown]
  - Musculoskeletal pain [Unknown]
  - Temporomandibular joint syndrome [Unknown]
  - Myalgia [Unknown]
  - Pruritus generalised [Unknown]
  - Fall [Unknown]
  - Arthralgia [Unknown]
  - Fatigue [Recovered/Resolved]
  - Bone pain [Unknown]
  - Cataract [Unknown]

NARRATIVE: CASE EVENT DATE: 20160309
